FAERS Safety Report 16796253 (Version 1)
Quarter: 2019Q3

REPORT INFORMATION
  Report Type: Spontaneous
  Country: US (occurrence: US)
  Receive Date: 20190911
  Receipt Date: 20190911
  Transmission Date: 20191005
  Serious: No
  Sender: FDA-Public Use
  Company Number: US-TEVA-2019-US-1104180

PATIENT
  Sex: Female

DRUGS (6)
  1. SYNRIBO [Suspect]
     Active Substance: OMACETAXINE MEPESUCCINATE
     Indication: CHRONIC MYELOID LEUKAEMIA
     Dosage: DOASGE: 2.5 MG/0.71 ML TWICE A DAY FOR 14 DAYS OUT OF 28 DAYS
     Route: 065
     Dates: start: 20190730
  2. BENZONATATE. [Concomitant]
     Active Substance: BENZONATATE
     Route: 065
  3. XANAX [Concomitant]
     Active Substance: ALPRAZOLAM
     Route: 065
  4. HYDREA [Concomitant]
     Active Substance: HYDROXYUREA
     Route: 065
  5. MORPHINE SULFATE. [Concomitant]
     Active Substance: MORPHINE SULFATE
     Route: 065
  6. FUROSEMIDE 10MG/ML [Concomitant]
     Route: 065

REACTIONS (1)
  - Pruritus [Not Recovered/Not Resolved]
